FAERS Safety Report 17572638 (Version 1)
Quarter: 2020Q1

REPORT INFORMATION
  Report Type: Spontaneous
  Country: US (occurrence: US)
  Receive Date: 20200323
  Receipt Date: 20200323
  Transmission Date: 20200409
  Serious: Yes (Other)
  Sender: FDA-Public Use
  Company Number: None

PATIENT
  Age: 58 Year
  Sex: Male
  Weight: 99 kg

DRUGS (8)
  1. OZEMPIC [Concomitant]
     Active Substance: SEMAGLUTIDE
  2. FINESTERIDE [Concomitant]
     Active Substance: FINASTERIDE
  3. POTASSIUM CITRATE. [Concomitant]
     Active Substance: POTASSIUM CITRATE
  4. OMEPRAZOLE 20MG [Suspect]
     Active Substance: OMEPRAZOLE
     Indication: GASTROOESOPHAGEAL REFLUX DISEASE
     Dosage: ?          QUANTITY:30 CAPSULE(S);?
     Route: 048
     Dates: start: 20200305, end: 20200320
  5. SIMVASTATIN. [Concomitant]
     Active Substance: SIMVASTATIN
  6. METAFORMIN [Concomitant]
  7. MULTIVITAMIN [Concomitant]
     Active Substance: VITAMINS
  8. TAMSULOSEN [Concomitant]

REACTIONS (4)
  - Chest pain [None]
  - Painful respiration [None]
  - Gastrooesophageal reflux disease [None]
  - Product substitution issue [None]

NARRATIVE: CASE EVENT DATE: 20200309
